FAERS Safety Report 8073070-X (Version None)
Quarter: 2012Q1

REPORT INFORMATION
  Report Type: 
  Country: None (occurrence: None)
  Receive Date: 20120126
  Receipt Date: 20120117
  Transmission Date: 20120608
  Serious: Yes (Life-Threatening)
  Sender: FDA-Public Use
  Company Number: JP-BRISTOL-MYERS SQUIBB COMPANY-16365009

PATIENT
  Age: 79 Year
  Sex: Male

DRUGS (2)
  1. ERBITUX [Suspect]
     Indication: COLORECTAL CANCER
     Route: 042
     Dates: start: 20120117, end: 20120117
  2. AMLODIPINE [Concomitant]
     Indication: HYPERTENSION
     Dosage: TABLET
     Route: 048

REACTIONS (1)
  - CEREBRAL HAEMORRHAGE [None]
